FAERS Safety Report 10967019 (Version 1)
Quarter: 2015Q1

REPORT INFORMATION
  Report Type: Spontaneous
  Country: US (occurrence: None)
  Receive Date: 20150327
  Receipt Date: 20150327
  Transmission Date: 20150721
  Serious: Yes (Disabling)
  Sender: FDA-Public Use
  Company Number: None

PATIENT
  Age: 20 Year
  Sex: Male
  Weight: 62.6 kg

DRUGS (15)
  1. PROZAC [Suspect]
     Active Substance: FLUOXETINE HYDROCHLORIDE
     Indication: OBSESSIVE-COMPULSIVE DISORDER
     Dosage: 3 CAPSULES
     Route: 048
     Dates: start: 20130711, end: 20131009
  2. PAXIL [Suspect]
     Active Substance: PAROXETINE HYDROCHLORIDE
     Indication: OBSESSIVE-COMPULSIVE DISORDER
     Dosage: 2 ONCE DAILY
     Route: 048
     Dates: start: 20011016, end: 20060524
  3. UDO^S SUPER8 PROBIOTIC [Concomitant]
  4. LIPOSOMAL GABA [Concomitant]
  5. L-TRYPTOPHAN [Concomitant]
     Active Substance: TRYPTOPHAN
  6. C-COMPLEX [Concomitant]
  7. NORDIC NATURALS PROEFA OMEGAS [Concomitant]
  8. LICORICE EXTRACT [Concomitant]
  9. KIRKMAN ADULT MULTIVITAMIN AND MINERAL [Concomitant]
  10. VITAMIN B COMPLEX [Concomitant]
     Active Substance: CYANOCOBALAMIN\DEXPANTHENOL\NIACINAMIDE\PYRIDOXINE HYDROCHLORIDE\RIBOFLAVIN 5^-PHOSPHATE SODIUM\THIAMINE HYDROCHLORIDE\VITAMIN B COMPLEX
  11. VITAMIN D [Concomitant]
     Active Substance: CHOLECALCIFEROL
  12. PHENITROPIC [Concomitant]
  13. VITAMIN E [Concomitant]
     Active Substance: .ALPHA.-TOCOPHEROL
  14. MAGNESIUM [Concomitant]
     Active Substance: MAGNESIUM
  15. 5-HTP [Concomitant]
     Active Substance: OXITRIPTAN

REACTIONS (42)
  - Panic attack [None]
  - Anhedonia [None]
  - Acne [None]
  - Educational problem [None]
  - Agoraphobia [None]
  - Dysphemia [None]
  - Dizziness [None]
  - Myalgia [None]
  - Sensory disturbance [None]
  - Irritability [None]
  - Time perception altered [None]
  - Confusional state [None]
  - Diarrhoea [None]
  - Gastrooesophageal reflux disease [None]
  - Hyperaesthesia [None]
  - Photophobia [None]
  - Dysgeusia [None]
  - Anxiety [None]
  - Agitation [None]
  - Inappropriate affect [None]
  - Fatigue [None]
  - Drug withdrawal syndrome [None]
  - Depression [None]
  - Amnesia [None]
  - Urinary tract infection [None]
  - Loss of consciousness [None]
  - Disturbance in attention [None]
  - Paraesthesia [None]
  - Temperature regulation disorder [None]
  - Immunodeficiency [None]
  - Hyperhidrosis [None]
  - Arthralgia [None]
  - Exaggerated startle response [None]
  - Penis disorder [None]
  - Head discomfort [None]
  - Tardive dyskinesia [None]
  - Crying [None]
  - Activities of daily living impaired [None]
  - Language disorder [None]
  - Hyperacusis [None]
  - Disturbance in sexual arousal [None]
  - Weight decreased [None]

NARRATIVE: CASE EVENT DATE: 20150326
